FAERS Safety Report 15201184 (Version 3)
Quarter: 2020Q1

REPORT INFORMATION
  Report Type: Spontaneous
  Country: US (occurrence: US)
  Receive Date: 20180726
  Receipt Date: 20200211
  Transmission Date: 20200409
  Serious: Yes (Hospitalization)
  Sender: FDA-Public Use
  Company Number: US-PFIZER INC-2018300227

PATIENT
  Age: 64 Year
  Sex: Female
  Weight: 118.84 kg

DRUGS (10)
  1. IBRANCE [Suspect]
     Active Substance: PALBOCICLIB
     Dosage: 20 MG, UNK
     Dates: start: 2018, end: 2019
  2. LISINOPRIL. [Concomitant]
     Active Substance: LISINOPRIL
     Indication: HYPERTENSION
     Dosage: 40 MG BY MOUTH 1 TIME DAILY
     Route: 048
     Dates: start: 2018, end: 201901
  3. TRAMADOL. [Concomitant]
     Active Substance: TRAMADOL
     Indication: BACK PAIN
     Dosage: 50 MG TABLET BY MOUTH 1 TIME DAILY
     Route: 048
     Dates: start: 2017
  4. LETROZOLE. [Concomitant]
     Active Substance: LETROZOLE
     Dosage: 25 MG BY MOUTH 1 TIME DAILY
     Route: 048
     Dates: start: 201806, end: 2019
  5. IBRANCE [Suspect]
     Active Substance: PALBOCICLIB
     Indication: BREAST CANCER
     Dosage: 125 MG (1 TABLET), CYCLIC (1 TIME DAILY FOR 21 DAYS OFF FOR 7 DAYS)
     Route: 048
     Dates: start: 201806, end: 20180705
  6. ASPIRIN. [Concomitant]
     Active Substance: ASPIRIN
     Indication: CARDIAC DISORDER
     Dosage: 325 MG TABLET BY MOUTH 1 TIME DAILY
     Route: 048
     Dates: start: 2018
  7. VITAMIN D3 [Concomitant]
     Active Substance: CHOLECALCIFEROL
     Dosage: 5000 MG BY MOUTH 1 TIME DAILY
     Route: 048
     Dates: start: 2017
  8. AMIODARONE [Concomitant]
     Active Substance: AMIODARONE
     Indication: CARDIAC DISORDER
     Dosage: 200 MG, DAILY
     Route: 048
     Dates: start: 201806
  9. VITAMIN E [Concomitant]
     Active Substance: .ALPHA.-TOCOPHEROL
     Dosage: 800 MG TABLET 1 TIME DAILY
     Dates: start: 2016
  10. CALCIUM [Concomitant]
     Active Substance: CALCIUM
     Indication: BONE DISORDER
     Dosage: 1200 MG TABLET 1 TIME DAILY
     Dates: start: 2016

REACTIONS (3)
  - Cardiac disorder [Recovered/Resolved]
  - Hot flush [Not Recovered/Not Resolved]
  - White blood cell count decreased [Recovered/Resolved]

NARRATIVE: CASE EVENT DATE: 2018
